FAERS Safety Report 6218049-5 (Version None)
Quarter: 2009Q2

REPORT INFORMATION
  Report Type: 
  Country: None (occurrence: None)
  Receive Date: 20090608
  Receipt Date: 20090527
  Transmission Date: 20091009
  Serious: Yes (Death)
  Sender: FDA-Public Use
  Company Number: JP-PFIZER INC-2009219942

PATIENT
  Age: 35 Year

DRUGS (2)
  1. HALCION [Suspect]
  2. METHAMPHETAMINE [Concomitant]

REACTIONS (1)
  - DEATH [None]
